FAERS Safety Report 9009702 (Version 1)
Quarter: 2013Q1

REPORT INFORMATION
  Report Type: Spontaneous
  Country: US (occurrence: US)
  Receive Date: 20130110
  Receipt Date: 20130110
  Transmission Date: 20140127
  Serious: No
  Sender: FDA-Public Use
  Company Number: US-PFIZER INC-2013001805

PATIENT
  Age: 59 Year
  Sex: Female
  Weight: 101.6 kg

DRUGS (3)
  1. LYRICA [Suspect]
     Indication: FIBROMYALGIA
     Dosage: 75 MG, 2X/DAY
     Route: 048
     Dates: end: 20121231
  2. HYDROCODONE [Concomitant]
     Indication: BACK PAIN
     Dosage: UNK
  3. FLUOXETINE [Concomitant]
     Dosage: 40 MG, 1X/DAY

REACTIONS (3)
  - Neuralgia [Not Recovered/Not Resolved]
  - Chills [Recovered/Resolved]
  - Hot flush [Recovered/Resolved]
